FAERS Safety Report 21141250 (Version 1)
Quarter: 2022Q3

REPORT INFORMATION
  Report Type: Spontaneous
  Country: GB (occurrence: GB)
  Receive Date: 20220728
  Receipt Date: 20220728
  Transmission Date: 20221026
  Serious: Yes (Other)
  Sender: FDA-Public Use
  Company Number: None

PATIENT
  Age: 51 Year
  Sex: Female
  Weight: 127 kg

DRUGS (11)
  1. AMOXICILLIN\CLAVULANIC ACID [Suspect]
     Active Substance: AMOXICILLIN\CLAVULANIC ACID
     Dosage: ONE TABLET TO BE TAKEN THREE TIMES A DAY. 500MG/125MG TABLETS
     Dates: start: 20220408, end: 20220610
  2. ANUSOL NOS [Concomitant]
     Active Substance: BALSAM PERU\BENZYL BENZOATE\BISMUTH HYDROXIDE\BISMUTH SUBGALLATE\HYDROCORTISONE ACETATE\ZINC OXIDE
     Dosage: INSERT ONE AS NEEDED
     Dates: start: 20220329, end: 20220405
  3. CEPHALEXIN [Concomitant]
     Active Substance: CEPHALEXIN
     Dosage: START THESE IF MORE UNWELL AND NITROFURANTOIN N...
     Dates: start: 20220408, end: 20220415
  4. FERROUS FUMARATE [Concomitant]
     Active Substance: FERROUS FUMARATE
     Dosage: ONE TO BE TAKEN THREE TIMES DAILY TO BOOST IRON...
     Dates: start: 20220221
  5. FLUCONAZOLE [Concomitant]
     Active Substance: FLUCONAZOLE
     Dosage: ONE CAPSULE TO BE TAKEN AS A SINGLE DOSE  TO TR...
     Dates: start: 20220408, end: 20220409
  6. METFORMIN [Concomitant]
     Active Substance: METFORMIN HYDROCHLORIDE
     Dosage: TWO TABLETS IN THE MORNING AND TWO TABLET IN TH...
     Dates: start: 20220221
  7. NITROFURANTOIN [Concomitant]
     Active Substance: NITROFURANTOIN
     Dosage: ONE CAPSULE TO BE TAKEN TWICE A DAY FOR SEVEN DAYS
     Dates: start: 20220531, end: 20220607
  8. OMEPRAZOLE [Concomitant]
     Active Substance: OMEPRAZOLE
     Dosage: TAKE TWO DAILY TO REDUCE STOMACH ACID.
     Dates: start: 20220221
  9. OZEMPIC [Concomitant]
     Active Substance: SEMAGLUTIDE
     Dosage: 0.25MG TO BE ADMINISTERED ONCE A WEEK BY  SUBCU...
     Dates: start: 20220526
  10. AMDINOCILLIN PIVOXIL [Concomitant]
     Active Substance: AMDINOCILLIN PIVOXIL
     Dosage: TAKE TWO TABLETS FOR THE FIRST DOSE, THEN ONE T...
     Dates: start: 20220610
  11. TRANEXAMIC ACID [Concomitant]
     Active Substance: TRANEXAMIC ACID
     Dosage: TWO TABLETS TO BE TAKEN THREE TIMES A DAY, FOR ...
     Dates: start: 20220422, end: 20220426

REACTIONS (1)
  - Vaginal haemorrhage [Recovered/Resolved]

NARRATIVE: CASE EVENT DATE: 20220613
